FAERS Safety Report 8501685-0 (Version None)
Quarter: 2012Q3

REPORT INFORMATION
  Report Type: 
  Country: None (occurrence: None)
  Receive Date: 20120711
  Receipt Date: 20120703
  Transmission Date: 20120928
  Serious: Yes (Hospitalization)
  Sender: FDA-Public Use
  Company Number: US-BIOGENIDEC-2012BI023672

PATIENT
  Age: 29 Year
  Sex: Female

DRUGS (1)
  1. AVONEX [Suspect]
     Indication: MULTIPLE SCLEROSIS
     Route: 030
     Dates: start: 20100511

REACTIONS (10)
  - FEAR OF NEEDLES [None]
  - CONVULSION [None]
  - VISUAL IMPAIRMENT [None]
  - SPEECH DISORDER [None]
  - MYDRIASIS [None]
  - PNEUMONIA [None]
  - LOSS OF CONSCIOUSNESS [None]
  - MIGRAINE [None]
  - PYREXIA [None]
  - PAIN [None]
